FAERS Safety Report 7971334-9 (Version None)
Quarter: 2011Q4

REPORT INFORMATION
  Report Type: 
  Country: None (occurrence: None)
  Receive Date: 20111212
  Receipt Date: 20111208
  Transmission Date: 20120403
  Serious: Yes (Death)
  Sender: FDA-Public Use
  Company Number: US-PFIZER INC-2011300678

PATIENT
  Sex: Male

DRUGS (2)
  1. CALAN [Suspect]
     Dosage: 180 MG, UNK
  2. NITROSTAT [Suspect]
     Dosage: 0.4 MG, UNK

REACTIONS (1)
  - DEATH [None]
